FAERS Safety Report 4333896-2 (Version None)
Quarter: 2004Q2

REPORT INFORMATION
  Report Type: 
  Country: None (occurrence: None)
  Receive Date: 20040402
  Receipt Date: 20040322
  Transmission Date: 20050107
  Serious: No
  Sender: FDA-Public Use
  Company Number: 04P-163-0254263-00

PATIENT
  Age: 53 Year
  Sex: Female
  Weight: 102.5129 kg

DRUGS (5)
  1. SYNTHROID [Suspect]
     Indication: HYPOTHYROIDISM
     Dosage: 75 MCG, 1 IN 1 D, PER ORAL
     Route: 048
     Dates: start: 20030101
  2. SULFA [Suspect]
     Indication: URINARY TRACT INFECTION
     Dosage: PER ORAL
     Route: 048
     Dates: start: 20040304, end: 20040318
  3. DYAZIDE [Concomitant]
  4. ASPIRIN [Concomitant]
  5. ORLISTAT [Concomitant]

REACTIONS (4)
  - URINARY TRACT INFECTION [None]
  - URTICARIA [None]
  - UTERINE CYST [None]
  - UTERINE LEIOMYOMA [None]
